FAERS Safety Report 9437860 (Version 1)
Quarter: 2013Q3

REPORT INFORMATION
  Report Type: Spontaneous
  Country: US (occurrence: US)
  Receive Date: 20130802
  Receipt Date: 20130802
  Transmission Date: 20140515
  Serious: No
  Sender: FDA-Public Use
  Company Number: US-BRISTOL-MYERS SQUIBB COMPANY-18857201

PATIENT
  Age: 55 Year
  Sex: Female
  Weight: 52.15 kg

DRUGS (2)
  1. COUMADIN [Suspect]
     Indication: PULMONARY EMBOLISM
  2. ALLOPURINOL [Suspect]
     Indication: COLITIS

REACTIONS (2)
  - White blood cell count decreased [Unknown]
  - International normalised ratio fluctuation [Unknown]
